FAERS Safety Report 8512455-1 (Version None)
Quarter: 2012Q3

REPORT INFORMATION
  Report Type: 
  Country: None (occurrence: None)
  Receive Date: 20120716
  Receipt Date: 20120702
  Transmission Date: 20120928
  Serious: Yes (Death, Other)
  Sender: FDA-Public Use
  Company Number: TR-MYLANLABS-2012S1013670

PATIENT
  Age: 9 Month
  Sex: Female

DRUGS (4)
  1. CARBOPLATIN [Suspect]
     Indication: BONE MARROW CONDITIONING REGIMEN
     Dosage: 300 MG/M2/DAY ON DAYS -5 TO -2
     Route: 065
  2. IOBENGUANE SULFATE I 131 [Suspect]
     Indication: BONE MARROW CONDITIONING REGIMEN
     Dosage: 100 MCI/KG (10 MCI/KG) ON DAY -21
     Route: 065
  3. MELPHALAN HYDROCHLORIDE [Suspect]
     Indication: BONE MARROW CONDITIONING REGIMEN
     Dosage: 45 MG/M2/DAY ON DAYS -8 TO -5
     Route: 065
  4. ETOPOSIDE [Suspect]
     Indication: BONE MARROW CONDITIONING REGIMEN
     Dosage: 200 MG/M2/DAY
     Route: 065

REACTIONS (2)
  - GASTROINTESTINAL HAEMORRHAGE [None]
  - MUCOSAL INFLAMMATION [None]
